FAERS Safety Report 16560052 (Version 5)
Quarter: 2019Q4

REPORT INFORMATION
  Report Type: Spontaneous
  Country: US (occurrence: US)
  Receive Date: 20190711
  Receipt Date: 20191113
  Transmission Date: 20200122
  Serious: No
  Sender: FDA-Public Use
  Company Number: US-PFIZER INC-2019294367

PATIENT
  Age: 66 Year
  Sex: Female
  Weight: 79.82 kg

DRUGS (3)
  1. IBRANCE [Suspect]
     Active Substance: PALBOCICLIB
     Indication: BREAST CANCER FEMALE
     Dosage: 125 MG, CYCLIC (1 CAP DAILY 21 DAYS AND 7 DAYS OFF )
     Route: 048
     Dates: start: 20190415
  2. IBRANCE [Suspect]
     Active Substance: PALBOCICLIB
     Dosage: 125 MG, CYCLIC (1 CAP DAILY 21 DAYS AND 7 DAYS OFF )
     Route: 048
     Dates: start: 20190415
  3. IBRANCE [Suspect]
     Active Substance: PALBOCICLIB
     Dosage: 125 MG, CYCLIC (1 CAP DAILY 21 DAYS AND 7 DAYS OFF )
     Route: 048
     Dates: start: 20190415

REACTIONS (4)
  - Lacrimation increased [Unknown]
  - Dysuria [Unknown]
  - Abdominal pain [Unknown]
  - Fatigue [Unknown]

NARRATIVE: CASE EVENT DATE: 2019
